FAERS Safety Report 17265483 (Version 3)
Quarter: 2020Q4

REPORT INFORMATION
  Report Type: Spontaneous
  Country: US (occurrence: US)
  Receive Date: 20200114
  Receipt Date: 20201008
  Transmission Date: 20210113
  Serious: Yes (Death, Hospitalization, Other)
  Sender: FDA-Public Use
  Company Number: US-TEVA-2020-US-1166201

PATIENT
  Age: 88 Year
  Sex: Male

DRUGS (2)
  1. WARFARIN 5 MG [Suspect]
     Active Substance: WARFARIN
     Indication: THROMBOSIS
     Dosage: 5 MILLIGRAM DAILY;
     Route: 065
     Dates: start: 201903
  2. WARFARIN 5 MG [Suspect]
     Active Substance: WARFARIN
     Route: 065
     Dates: start: 201904, end: 20191212

REACTIONS (2)
  - Drug ineffective [Unknown]
  - Pulmonary haemorrhage [Fatal]

NARRATIVE: CASE EVENT DATE: 20191201
